FAERS Safety Report 8553320-3 (Version None)
Quarter: 2012Q3

REPORT INFORMATION
  Report Type: 
  Country: None (occurrence: None)
  Receive Date: 20120731
  Receipt Date: 20120725
  Transmission Date: 20120928
  Serious: Yes (Other)
  Sender: FDA-Public Use
  Company Number: JP-EISAI INC-E2020-11118-SPO-JP

PATIENT
  Sex: Male

DRUGS (1)
  1. ARICEPT [Suspect]
     Route: 048

REACTIONS (1)
  - SUICIDE ATTEMPT [None]
